FAERS Safety Report 9257852 (Version 2)
Quarter: 2013Q3

REPORT INFORMATION
  Report Type: Spontaneous
  Country: US (occurrence: US)
  Receive Date: 20130426
  Receipt Date: 20130705
  Transmission Date: 20140515
  Serious: Yes (Other)
  Sender: FDA-Public Use
  Company Number: US-ASTRAZENECA-2013SE27636

PATIENT
  Age: 49 Year
  Sex: Female
  Weight: 126.1 kg

DRUGS (25)
  1. NEXIUM [Suspect]
     Indication: GASTROOESOPHAGEAL REFLUX DISEASE
     Route: 048
     Dates: start: 1999, end: 2013
  2. NEXIUM [Suspect]
     Indication: GASTROOESOPHAGEAL REFLUX DISEASE
     Route: 048
     Dates: start: 2003, end: 2007
  3. NEXIUM [Suspect]
     Indication: GASTROOESOPHAGEAL REFLUX DISEASE
     Route: 048
     Dates: start: 2010, end: 2011
  4. NEXIUM [Suspect]
     Indication: GASTROOESOPHAGEAL REFLUX DISEASE
     Route: 048
     Dates: start: 20110916
  5. PRILOSEC [Suspect]
     Indication: GASTROOESOPHAGEAL REFLUX DISEASE
     Route: 048
     Dates: start: 2000, end: 2004
  6. PROTONIX [Concomitant]
     Indication: GASTROOESOPHAGEAL REFLUX DISEASE
     Dates: start: 2006
  7. PROTONIX [Concomitant]
     Indication: GASTROOESOPHAGEAL REFLUX DISEASE
     Dates: start: 2006
  8. PREVACID [Concomitant]
     Indication: GASTROOESOPHAGEAL REFLUX DISEASE
     Dates: start: 1999, end: 2007
  9. ACIPHEX [Concomitant]
     Indication: GASTROOESOPHAGEAL REFLUX DISEASE
     Dates: start: 2011, end: 2012
  10. ZANTAC [Concomitant]
     Indication: GASTROOESOPHAGEAL REFLUX DISEASE
     Dates: start: 2007
  11. TUMS [Concomitant]
     Indication: GASTROOESOPHAGEAL REFLUX DISEASE
  12. PEPTO BISMOL [Concomitant]
     Indication: GASTROOESOPHAGEAL REFLUX DISEASE
  13. ROLAIDS [Concomitant]
     Indication: GASTROOESOPHAGEAL REFLUX DISEASE
  14. MYLANTA [Concomitant]
     Indication: GASTROOESOPHAGEAL REFLUX DISEASE
  15. ALKASELTZER [Concomitant]
     Indication: GASTROOESOPHAGEAL REFLUX DISEASE
  16. ATENOLOL [Concomitant]
     Indication: HYPERTENSION
  17. ATENOLOL [Concomitant]
     Indication: HYPERTENSION
     Dates: start: 20031111
  18. POTASSIUM CHLORIDE [Concomitant]
     Indication: BLOOD POTASSIUM DECREASED
  19. HYDROCHLOROTHIAZIDE [Concomitant]
     Indication: BLOOD PRESSURE ABNORMAL
  20. METOPROLOL [Concomitant]
     Dates: start: 20081008
  21. LISINOPRIL HCTZ [Concomitant]
     Dosage: 20-25 MG
     Dates: start: 20080902
  22. ATACAND HCT [Concomitant]
     Dosage: 16-12.5 MG
     Dates: start: 20040322
  23. RANITIDINE [Concomitant]
     Dosage: 16-12.5 MG
     Dates: start: 20040322
  24. PROMETHAZINE [Concomitant]
     Dates: start: 20070411
  25. NAPROXEN [Concomitant]
     Dates: start: 20081220

REACTIONS (14)
  - Cervical radiculopathy [Unknown]
  - Spinal column stenosis [Unknown]
  - Intervertebral disc degeneration [Unknown]
  - Spinal disorder [Unknown]
  - Osteoporosis [Unknown]
  - Bone disorder [Unknown]
  - Multiple fractures [Unknown]
  - Hypomagnesaemia [Unknown]
  - Arthritis [Unknown]
  - Radiculitis brachial [Unknown]
  - Gallbladder disorder [Unknown]
  - Blood potassium decreased [Unknown]
  - Facet joint syndrome [Unknown]
  - Spinal osteoarthritis [Unknown]
